FAERS Safety Report 23482092 (Version 1)
Quarter: 2024Q1

REPORT INFORMATION
  Report Type: Spontaneous
  Country: AU (occurrence: AU)
  Receive Date: 20240205
  Receipt Date: 20240205
  Transmission Date: 20240409
  Serious: Yes (Hospitalization)
  Sender: FDA-Public Use
  Company Number: AU-MYLANLABS-2024M1005562

PATIENT
  Age: 39 Year
  Sex: Male
  Weight: 109 kg

DRUGS (18)
  1. CLOZARIL [Suspect]
     Active Substance: CLOZAPINE
     Indication: Schizophrenia
     Dosage: 44 MILLIGRAM
     Route: 048
     Dates: start: 20231227
  2. CLOZARIL [Suspect]
     Active Substance: CLOZAPINE
     Dosage: 6.25 MILLIGRAM, QD
     Route: 048
     Dates: start: 20231227, end: 20231229
  3. CLOZARIL [Suspect]
     Active Substance: CLOZAPINE
     Dosage: 12.5 MILLIGRAM, QD
     Route: 048
     Dates: start: 20231230, end: 20240102
  4. CLOZARIL [Suspect]
     Active Substance: CLOZAPINE
     Dosage: 18.75 MILLIGRAM, QD
     Route: 048
     Dates: start: 20240103, end: 20240105
  5. CLOZARIL [Suspect]
     Active Substance: CLOZAPINE
     Dosage: 25 MILLIGRAM, QD
     Route: 048
     Dates: start: 20240106, end: 20240108
  6. CLOZARIL [Suspect]
     Active Substance: CLOZAPINE
     Dosage: 31.25 MILLIGRAM, QD
     Route: 048
     Dates: start: 20240109, end: 20240111
  7. CLOZARIL [Suspect]
     Active Substance: CLOZAPINE
     Dosage: 37.5 MILLIGRAM, QD
     Route: 048
     Dates: start: 20240112, end: 20240115
  8. CLOZARIL [Suspect]
     Active Substance: CLOZAPINE
     Dosage: 43.75 MILLIGRAM, QD
     Route: 048
     Dates: start: 20240116, end: 20240118
  9. CLOZARIL [Suspect]
     Active Substance: CLOZAPINE
     Dosage: 50 MILLIGRAM, QD
     Route: 048
     Dates: start: 20240119, end: 20240122
  10. CLOZARIL [Suspect]
     Active Substance: CLOZAPINE
     Dosage: UNK
     Route: 048
  11. BISOPROLOL [Concomitant]
     Active Substance: BISOPROLOL\BISOPROLOL FUMARATE
     Dosage: 2.5 MILLIGRAM, QD
     Route: 048
  12. RAMIPRIL [Concomitant]
     Active Substance: RAMIPRIL
     Dosage: 2.5 MILLIGRAM, QD
     Route: 048
  13. ARIPIPRAZOLE [Concomitant]
     Active Substance: ARIPIPRAZOLE
     Dosage: 15 MILLIGRAM, QD
     Route: 048
  14. AMISULPRIDE [Concomitant]
     Active Substance: AMISULPRIDE
     Dosage: 400 MILLIGRAM, BID
     Route: 048
  15. MIRTAZAPINE [Concomitant]
     Active Substance: MIRTAZAPINE
     Dosage: 30 MILLIGRAM, QD
     Route: 048
  16. VALPROATE SODIUM [Concomitant]
     Active Substance: VALPROATE SODIUM
     Dosage: 500 MILLIGRAM, BID
     Route: 048
  17. ROSUVASTATIN [Concomitant]
     Active Substance: ROSUVASTATIN
     Dosage: 10 MILLIGRAM, QD
     Route: 048
  18. ALLOPURINOL [Concomitant]
     Active Substance: ALLOPURINOL
     Dosage: 100 MILLIGRAM, QD
     Route: 048

REACTIONS (3)
  - Schizophrenia [Unknown]
  - Eosinophil count increased [Unknown]
  - Therapy cessation [Unknown]

NARRATIVE: CASE EVENT DATE: 20240115
